FAERS Safety Report 6212568-3 (Version None)
Quarter: 2009Q2

REPORT INFORMATION
  Report Type: 
  Country: None (occurrence: None)
  Receive Date: 20090602
  Receipt Date: 20090602
  Transmission Date: 20091009
  Serious: Yes (Other)
  Sender: FDA-Public Use
  Company Number: None

PATIENT
  Sex: Female
  Weight: 49.8957 kg

DRUGS (1)
  1. THYROID TAB [Suspect]
     Indication: HYPOTHYROIDISM
     Dosage: 30 MG (1/2 TAB) THREE TIMES A DAY ORAL (047)
     Route: 048
     Dates: start: 20090429, end: 20090515

REACTIONS (1)
  - PRODUCT QUALITY ISSUE [None]
